FAERS Safety Report 10818269 (Version 1)
Quarter: 2015Q1

REPORT INFORMATION
  Report Type: Spontaneous
  Country: US (occurrence: US)
  Receive Date: 20150218
  Receipt Date: 20150218
  Transmission Date: 20150721
  Serious: Yes (Other)
  Sender: FDA-Public Use
  Company Number: US-TEVA-540666USA

PATIENT
  Age: 72 Year
  Sex: Female
  Weight: 158.9 kg

DRUGS (12)
  1. NABUMETONE. [Suspect]
     Active Substance: NABUMETONE
     Indication: ARTHRITIS
     Dosage: 1000 MILLIGRAM DAILY;
     Dates: start: 20150113
  2. NEURONTIN [Concomitant]
     Active Substance: GABAPENTIN
     Indication: HYPERSENSITIVITY
  3. NABUMETONE. [Suspect]
     Active Substance: NABUMETONE
     Indication: BACK PAIN
  4. PROZAC [Concomitant]
     Active Substance: FLUOXETINE HYDROCHLORIDE
     Indication: DEPRESSION
     Dosage: 14 MILLIGRAM DAILY;
  5. OMEPRAZOLE. [Concomitant]
     Active Substance: OMEPRAZOLE
     Indication: OESOPHAGITIS
     Dosage: 40 MILLIGRAM DAILY;
  6. ATENOLOL. [Concomitant]
     Active Substance: ATENOLOL
     Indication: HEART RATE INCREASED
     Dosage: 25 MILLIGRAM DAILY;
  7. GABAPENTIN. [Concomitant]
     Active Substance: GABAPENTIN
     Indication: PAIN
     Dosage: 1-3 CAPSULES TWICE DAILY
  8. CELEBREX [Concomitant]
     Active Substance: CELECOXIB
  9. OXYGEN. [Concomitant]
     Active Substance: OXYGEN
     Dosage: AT NIGHT
  10. HYDROCHLOROTHIAZIDE. [Concomitant]
     Active Substance: HYDROCHLOROTHIAZIDE
     Indication: HYPERTENSION
     Dosage: 25 MILLIGRAM DAILY;
  11. FLOVENT [Concomitant]
     Active Substance: FLUTICASONE PROPIONATE
     Indication: HYPERSENSITIVITY
     Dosage: 1 PACK
     Route: 055
  12. OCUVITE [Concomitant]
     Active Substance: VITAMINS
     Indication: MACULAR DEGENERATION

REACTIONS (3)
  - Choking [Recovered/Resolved]
  - Drug hypersensitivity [Recovered/Resolved]
  - Pharyngeal oedema [Recovered/Resolved]

NARRATIVE: CASE EVENT DATE: 20150125
